FAERS Safety Report 6282246-3 (Version None)
Quarter: 2009Q3

REPORT INFORMATION
  Report Type: 
  Country: None (occurrence: None)
  Receive Date: 20090724
  Receipt Date: 20090720
  Transmission Date: 20100115
  Serious: Yes (Other)
  Sender: FDA-Public Use
  Company Number: BR-BAYER-200918459LA

PATIENT
  Sex: Female

DRUGS (1)
  1. CIPRO [Suspect]
     Indication: DRUG USE FOR UNKNOWN INDICATION
     Dosage: INFUSION WAS DONE IN 60 MINUTES
     Route: 065
     Dates: start: 20090519, end: 20090529

REACTIONS (4)
  - INFUSION SITE ERYTHEMA [None]
  - INFUSION SITE NECROSIS [None]
  - INFUSION SITE PAIN [None]
  - INFUSION SITE WARMTH [None]
